FAERS Safety Report 24085819 (Version 1)
Quarter: 2024Q3

REPORT INFORMATION
  Report Type: Spontaneous
  Country: CN (occurrence: CN)
  Receive Date: 20240712
  Receipt Date: 20240712
  Transmission Date: 20241016
  Serious: Yes (Hospitalization)
  Sender: ABBVIE
  Company Number: CN-PFIZER INC-PV202400088799

PATIENT
  Age: 44 Year
  Sex: Male

DRUGS (3)
  1. AVIBACTAM SODIUM [Suspect]
     Active Substance: AVIBACTAM SODIUM
     Indication: Pneumonia
     Route: 065
  2. AVIBACTAM SODIUM [Suspect]
     Active Substance: AVIBACTAM SODIUM
     Indication: Pneumonia
     Dosage: TIME INTERVAL: 0.33333333 DAYS: 2.5 G, 3X/DAY (Q8H)
     Route: 041
     Dates: start: 20240606, end: 20240613
  3. SODIUM CHLORIDE [Concomitant]
     Active Substance: SODIUM CHLORIDE
     Indication: Vehicle solution use
     Dosage: TIME INTERVAL: 0.33333333 DAYS: 100 ML, 3X/DAY (Q8H)
     Route: 041
     Dates: start: 20240606, end: 20240613

REACTIONS (2)
  - Rash maculo-papular [Recovered/Resolved]
  - Phlebitis [Recovered/Resolved]

NARRATIVE: CASE EVENT DATE: 20240608
